FAERS Safety Report 21019426 (Version 1)
Quarter: 2022Q2

REPORT INFORMATION
  Report Type: Spontaneous
  Country: US (occurrence: US)
  Receive Date: 20220628
  Receipt Date: 20220628
  Transmission Date: 20220721
  Serious: No
  Sender: FDA-Public Use
  Company Number: US-SA-SAC20220623000533

PATIENT
  Age: 54 Year
  Sex: Male

DRUGS (4)
  1. DUPIXENT [Suspect]
     Active Substance: DUPILUMAB
     Indication: Dermatitis atopic
     Dosage: 300 MG, QOW
  2. FAMOTIDINE [Concomitant]
     Active Substance: FAMOTIDINE
  3. COLCHICINE [Concomitant]
     Active Substance: COLCHICINE
     Dosage: .6 MG
  4. TRIAMCINOLONE ACETONIDE [Concomitant]
     Active Substance: TRIAMCINOLONE ACETONIDE
     Dosage: .1 %

REACTIONS (1)
  - Dermatitis [Not Recovered/Not Resolved]
